FAERS Safety Report 12795483 (Version 2)
Quarter: 2016Q4

REPORT INFORMATION
  Report Type: Spontaneous
  Country: US (occurrence: US)
  Receive Date: 20160929
  Receipt Date: 20161005
  Transmission Date: 20170207
  Serious: No
  Sender: FDA-Public Use
  Company Number: US-HORIZON-DUE-0175-2016

PATIENT
  Sex: Male

DRUGS (1)
  1. DUEXIS [Suspect]
     Active Substance: FAMOTIDINE\IBUPROFEN
     Indication: SPINAL COLUMN STENOSIS
     Dosage: BID
     Dates: start: 201609

REACTIONS (3)
  - Polyuria [Not Recovered/Not Resolved]
  - Off label use [Unknown]
  - Therapeutic product ineffective for unapproved indication [Unknown]

NARRATIVE: CASE EVENT DATE: 201609
